FAERS Safety Report 6104050-9 (Version None)
Quarter: 2009Q1

REPORT INFORMATION
  Report Type: 
  Country: None (occurrence: None)
  Receive Date: 20090302
  Receipt Date: 20090225
  Transmission Date: 20090719
  Serious: Yes (Other)
  Sender: FDA-Public Use
  Company Number: 100#03#2009-00762

PATIENT
  Age: 66 Year

DRUGS (2)
  1. CITALOPRAM HYDROBROMIDE [Suspect]
     Indication: MENTAL DISORDER
     Dosage: 20 MG ORAL
     Route: 048
     Dates: start: 20000101, end: 20080101
  2. ZOPICLONE (ZOPICLONE) [Suspect]
     Indication: INSOMNIA
     Dosage: 7.5 MG ORAL
     Route: 048
     Dates: start: 20000101, end: 20060101

REACTIONS (3)
  - DRY MOUTH [None]
  - SJOGREN'S SYNDROME [None]
  - WITHDRAWAL SYNDROME [None]
